FAERS Safety Report 7609836-7 (Version None)
Quarter: 2011Q3

REPORT INFORMATION
  Report Type: 
  Country: None (occurrence: None)
  Receive Date: 20110714
  Receipt Date: 20110712
  Transmission Date: 20111222
  Serious: Yes (Death)
  Sender: FDA-Public Use
  Company Number: US-PFIZER INC-2011155776

PATIENT
  Age: 47 Year
  Sex: Female

DRUGS (8)
  1. TOPIRAMATE [Suspect]
     Dosage: UNK
     Route: 048
     Dates: end: 20070101
  2. LEVOTHYROXINE SODIUM [Suspect]
     Dosage: UNK
     Route: 048
     Dates: end: 20070101
  3. HYDROXYZINE [Suspect]
     Dosage: UNK
     Route: 048
     Dates: end: 20070101
  4. EZETIMIBE [Suspect]
     Dosage: UNK
     Route: 048
     Dates: end: 20070101
  5. GABAPENTIN [Suspect]
     Dosage: UNK
     Route: 048
     Dates: end: 20070101
  6. QUETIAPINE FUMARATE [Suspect]
     Dosage: UNK
     Route: 048
     Dates: end: 20070101
  7. MIRTAZAPINE [Suspect]
     Dosage: UNK
     Route: 048
     Dates: end: 20070101
  8. TRAZODONE HCL [Suspect]
     Dosage: UNK
     Route: 048
     Dates: end: 20070101

REACTIONS (1)
  - COMPLETED SUICIDE [None]
